FAERS Safety Report 6121031-X (Version None)
Quarter: 2009Q1

REPORT INFORMATION
  Report Type: 
  Country: None (occurrence: None)
  Receive Date: 20090317
  Receipt Date: 20090312
  Transmission Date: 20090719
  Serious: Yes (Other)
  Sender: FDA-Public Use
  Company Number: PHHY2009AT09158

PATIENT
  Sex: Female

DRUGS (16)
  1. RASILEZ [Suspect]
     Dosage: UNK, QD
  2. RASILEZ [Interacting]
     Dosage: UNK, BID
  3. RASILEZ [Interacting]
     Dosage: UNK, QD
  4. MARCUMAR [Interacting]
     Dosage: QUARTER OF DF QD
  5. OLMETEC [Concomitant]
     Dosage: 40 MG
  6. AMLODIPINE [Concomitant]
     Dosage: 2.5 MG, QD
  7. INSPRA [Concomitant]
     Dosage: 0.5 DF (50 MG) DAILY
  8. ACEMIN [Concomitant]
     Dosage: 30 MG, QD
  9. ESTULIC [Concomitant]
     Dosage: 0.5 DF, QD
  10. DANCOR [Concomitant]
     Dosage: 20 MG, 1/2-0-1
  11. NOMEXOR [Concomitant]
     Dosage: 0-0-1/2
  12. LASIX [Concomitant]
     Dosage: 0.5 DF, TWICE A WEEK
  13. MODURETIC 5-50 [Concomitant]
     Dosage: 1/2 DAILY
  14. SIMVASTATIN [Concomitant]
     Dosage: 0.5 DF (40 MG) DAILY
  15. SEDACORON [Concomitant]
     Dosage: 1/2 ONCE DAILY
  16. NEXIUM [Concomitant]
     Dosage: 40 MG, QD

REACTIONS (2)
  - DRUG INTERACTION [None]
  - INTERNATIONAL NORMALISED RATIO INCREASED [None]
